FAERS Safety Report 9495918 (Version 1)
Quarter: 2013Q3

REPORT INFORMATION
  Report Type: Spontaneous
  Country: US (occurrence: US)
  Receive Date: 20130903
  Receipt Date: 20130903
  Transmission Date: 20140515
  Serious: No
  Sender: FDA-Public Use
  Company Number: US-009507513-1308USA010486

PATIENT
  Sex: Female

DRUGS (1)
  1. COZAAR [Suspect]
     Route: 048

REACTIONS (4)
  - Dysphonia [Unknown]
  - Drug intolerance [Unknown]
  - Dizziness [Unknown]
  - Malaise [Unknown]
